FAERS Safety Report 16112561 (Version 1)
Quarter: 2019Q1

REPORT INFORMATION
  Report Type: Spontaneous
  Country: US (occurrence: US)
  Receive Date: 20190325
  Receipt Date: 20190325
  Transmission Date: 20190418
  Serious: No
  Sender: FDA-Public Use
  Company Number: US-PFIZER INC-2019117830

PATIENT
  Age: 58 Year
  Sex: Female

DRUGS (1)
  1. CEFTRIAXONE SODIUM. [Suspect]
     Active Substance: CEFTRIAXONE SODIUM
     Dosage: UNK

REACTIONS (4)
  - Urticaria [Unknown]
  - Drug hypersensitivity [Unknown]
  - Rash [Unknown]
  - Pharyngeal oedema [Unknown]
